FAERS Safety Report 4793777-7 (Version None)
Quarter: 2005Q4

REPORT INFORMATION
  Report Type: 
  Country: None (occurrence: None)
  Receive Date: 20051006
  Receipt Date: 20050921
  Transmission Date: 20060501
  Serious: Yes (Disabling)
  Sender: FDA-Public Use
  Company Number: DPC-2005-00072

PATIENT
  Age: 37 Year
  Sex: Female
  Weight: 68.0396 kg

DRUGS (4)
  1. FLOXIN OTIC [Suspect]
     Indication: OTITIS EXTERNA
     Dosage: 8 DROPS (TID), AURICULAR (OTIC)
     Route: 001
     Dates: start: 20020425, end: 20020508
  2. NEOMYCIN AND POLYMXIN B SULFATES AND HYDROCORTISONE [Suspect]
     Dosage: SEE IMAGE
     Route: 001
     Dates: start: 20020508, end: 20020601
  3. NEOMYCIN AND POLYMXIN B SULFATES AND HYDROCORTISONE [Suspect]
     Dosage: SEE IMAGE
     Route: 001
     Dates: start: 20020602, end: 20020730
  4. NEOMYCIN AND POLYMXIN B SULFATES AND HYDROCORTISONE [Suspect]
     Dosage: SEE IMAGE
     Route: 001
     Dates: start: 20020731, end: 20020803

REACTIONS (15)
  - APPLICATION SITE REACTION [None]
  - BURNING SENSATION [None]
  - CONDUCTIVE DEAFNESS [None]
  - DEAFNESS UNILATERAL [None]
  - EAR PAIN [None]
  - JOINT DISLOCATION [None]
  - NECK PAIN [None]
  - NEURALGIA [None]
  - OTORRHOEA [None]
  - PAIN IN JAW [None]
  - PRURITUS [None]
  - SURGICAL PROCEDURE REPEATED [None]
  - TINNITUS [None]
  - TYMPANIC MEMBRANE PERFORATION [None]
  - VERTIGO [None]
